FAERS Safety Report 14648226 (Version 1)
Quarter: 2018Q1

REPORT INFORMATION
  Report Type: Spontaneous
  Country: IT (occurrence: IT)
  Receive Date: 20180316
  Receipt Date: 20180316
  Transmission Date: 20180509
  Serious: Yes (Hospitalization)
  Sender: FDA-Public Use
  Company Number: IT-PFIZER INC-2018108627

PATIENT
  Age: 39 Year
  Sex: Female

DRUGS (2)
  1. ANAFRANIL [Suspect]
     Active Substance: CLOMIPRAMINE HYDROCHLORIDE
     Dosage: 6 DF, TOTAL
     Route: 048
     Dates: start: 20170127, end: 20170127
  2. XANAX [Suspect]
     Active Substance: ALPRAZOLAM
     Dosage: 6 DF, TOTAL
     Route: 048
     Dates: start: 20170127, end: 20170127

REACTIONS (4)
  - Drug abuse [Recovered/Resolved]
  - Confusional state [Recovered/Resolved]
  - Sopor [Recovered/Resolved]
  - Suicide attempt [Recovered/Resolved]

NARRATIVE: CASE EVENT DATE: 20170127
